FAERS Safety Report 9817873 (Version 2)
Quarter: 2014Q2

REPORT INFORMATION
  Report Type: Spontaneous
  Country: MX (occurrence: MX)
  Receive Date: 20140115
  Receipt Date: 20140530
  Transmission Date: 20141212
  Serious: Yes (Other)
  Sender: FDA-Public Use
  Company Number: PHHY2014MX000662

PATIENT
  Age: 60 Year
  Sex: Female

DRUGS (5)
  1. DIOVAN [Suspect]
     Indication: HYPERTENSION
     Dosage: UNK UKN, UNK
     Route: 048
  2. DIOVAN [Suspect]
     Dosage: 1 DF (80MG VALS), DAILY
     Route: 048
     Dates: start: 201312, end: 20131229
  3. DIOVAN [Suspect]
     Dosage: 2 DF (80MG VALS), DAILY
     Route: 048
     Dates: start: 201312
  4. EXFORGE HCT [Suspect]
     Indication: HYPERTENSION
     Dosage: 0.5 DF (160MG VALS/5MG AMLO/12.5MG HCT), UNK
     Dates: end: 201312
  5. EXFORGE HCT [Suspect]
     Dosage: 1 DF (160MG VALS/5MG AMLO/12.5MG HCT), UNK
     Dates: start: 20131229

REACTIONS (12)
  - Fibromyalgia [Unknown]
  - Asthma [Recovered/Resolved]
  - Sleep disorder [Unknown]
  - Chest discomfort [Recovered/Resolved]
  - Aggression [Recovered/Resolved]
  - Discomfort [Recovered/Resolved]
  - Muscle spasms [Recovered/Resolved]
  - Influenza [Recovered/Resolved]
  - Malaise [Recovered/Resolved]
  - Asthenia [Recovered/Resolved]
  - Fatigue [Recovered/Resolved]
  - Blood pressure increased [Recovered/Resolved]
